FAERS Safety Report 24755905 (Version 1)
Quarter: 2024Q4

REPORT INFORMATION
  Report Type: Spontaneous
  Country: CA (occurrence: CA)
  Receive Date: 20241219
  Receipt Date: 20241219
  Transmission Date: 20250115
  Serious: Yes (Other)
  Sender: BIOMARIN
  Company Number: CA-BIOMARINAP-CA-2024-162556

PATIENT

DRUGS (1)
  1. VIMIZIM [Suspect]
     Active Substance: ELOSULFASE ALFA
     Indication: Mucopolysaccharidosis IV
     Dosage: 35 MILLIGRAM, QW
     Route: 042
     Dates: start: 20210325

REACTIONS (9)
  - Cervical spinal stenosis [Unknown]
  - Foramen magnum stenosis [Unknown]
  - Thoracic spinal stenosis [Unknown]
  - Knee deformity [Unknown]
  - Foot deformity [Unknown]
  - Dislocation of vertebra [Unknown]
  - Lordosis [Unknown]
  - Musculoskeletal stiffness [Unknown]
  - Nasopharyngitis [Unknown]
